FAERS Safety Report 9445852 (Version 1)
Quarter: 2013Q3

REPORT INFORMATION
  Report Type: Spontaneous
  Country: BR (occurrence: BR)
  Receive Date: 20130807
  Receipt Date: 20130807
  Transmission Date: 20140515
  Serious: Yes (Other)
  Sender: FDA-Public Use
  Company Number: BR-BRISTOL-MYERS SQUIBB COMPANY-19150960

PATIENT
  Age: 58 Year
  Sex: Female
  Weight: 80 kg

DRUGS (6)
  1. ONGLYZA TABS 5 MG [Suspect]
     Indication: TYPE 2 DIABETES MELLITUS
     Dosage: BEFORE LUNCH?THERAPY STARTED AROUND 3 YEARS AGO-ONG
     Route: 048
  2. GLIFAGE XR [Suspect]
     Indication: DIABETES MELLITUS
     Dosage: 4TABS
  3. AMARYL [Suspect]
     Indication: DIABETES MELLITUS
  4. LOSARTAN POTASSIUM [Concomitant]
  5. HYDROCHLOROTHIAZIDE [Concomitant]
     Dosage: TAB
  6. ATENOLOL [Concomitant]
     Indication: HYPERTENSION

REACTIONS (4)
  - Syncope [Unknown]
  - Drug dose omission [Unknown]
  - Blood glucose decreased [Unknown]
  - Drug administration error [Unknown]
